FAERS Safety Report 4707277-3 (Version None)
Quarter: 2005Q3

REPORT INFORMATION
  Report Type: 
  Country: None (occurrence: None)
  Receive Date: 20050701
  Receipt Date: 20050701
  Transmission Date: 20060218
  Serious: Yes (Hospitalization)
  Sender: FDA-Public Use
  Company Number: None

PATIENT
  Age: 52 Year
  Sex: Male

DRUGS (2)
  1. PAMIDRONATE    90MG/10ML     GENSIA SICOR PHARMACEUTICALS [Suspect]
     Indication: HYPERCALCAEMIA
     Dosage: 90MG   ONCE  INTRAVENOU
     Route: 042
     Dates: start: 20050520, end: 20050520
  2. ZOLEDRONIC ACID    4MG/5ML     NOVARTIS [Suspect]
     Indication: HYPERCALCAEMIA
     Dosage: 3MG   ONCE   INTRAVENOU
     Route: 042
     Dates: start: 20050521, end: 20050521

REACTIONS (4)
  - HYPOCALCAEMIA [None]
  - HYPOPHOSPHATAEMIA [None]
  - MEDICATION ERROR [None]
  - RENAL IMPAIRMENT [None]
